FAERS Safety Report 24250227 (Version 1)
Quarter: 2024Q3

REPORT INFORMATION
  Report Type: Spontaneous
  Country: US (occurrence: US)
  Receive Date: 20240826
  Receipt Date: 20240826
  Transmission Date: 20241016
  Serious: No
  Sender: pharmaAND
  Company Number: US-PHARMAAND-2023PHR00069

PATIENT
  Sex: Female

DRUGS (2)
  1. PEGASYS [Suspect]
     Active Substance: PEGINTERFERON ALFA-2A
     Indication: Macular degeneration
     Dosage: UNK, 1X/MONTH
     Route: 058
  2. PEGASYS [Suspect]
     Active Substance: PEGINTERFERON ALFA-2A
     Indication: Retinal oedema

REACTIONS (4)
  - Injection site pruritus [Unknown]
  - Injection site nodule [Unknown]
  - Injection site erythema [Unknown]
  - Off label use [Not Recovered/Not Resolved]
